FAERS Safety Report 9770955 (Version 2)
Quarter: 2014Q1

REPORT INFORMATION
  Report Type: Spontaneous
  Country: US (occurrence: US)
  Receive Date: 20131218
  Receipt Date: 20140127
  Transmission Date: 20141002
  Serious: Yes (Congenital Anomaly, Other)
  Sender: FDA-Public Use
  Company Number: US-PFIZER INC-2013358541

PATIENT
  Age: 7 Day
  Sex: Male

DRUGS (10)
  1. SERTRALINE HCL [Suspect]
     Indication: ANXIETY
     Dosage: UNK
     Route: 064
     Dates: start: 2009, end: 2010
  2. SERTRALINE HCL [Suspect]
     Indication: DEPRESSION
  3. SERTRALINE HCL [Suspect]
     Indication: AFFECTIVE DISORDER
  4. ADVIL [Concomitant]
     Dosage: UNK
     Route: 064
  5. PRENATAL VITAMINS [Concomitant]
     Dosage: UNK
     Route: 064
  6. OTC COLD MEDICATION [Concomitant]
     Dosage: UNK
     Route: 064
  7. TOPAMAX [Concomitant]
     Dosage: UNK
     Route: 064
  8. OCELLA [Concomitant]
     Dosage: UNK
     Route: 064
  9. BUDEPRION XL [Concomitant]
     Dosage: UNK
     Route: 064
  10. VITAMIN B6 [Concomitant]
     Dosage: UNK
     Route: 064

REACTIONS (8)
  - Foetal exposure during pregnancy [Unknown]
  - Pulmonary valve stenosis congenital [Unknown]
  - Pulmonary artery atresia [Unknown]
  - Patent ductus arteriosus [Unknown]
  - Tricuspid valve incompetence [Unknown]
  - Tricuspid valve incompetence [Unknown]
  - Congenital pulmonary valve disorder [Unknown]
  - Convulsion neonatal [Unknown]
